FAERS Safety Report 6168810-0 (Version None)
Quarter: 2009Q2

REPORT INFORMATION
  Report Type: 
  Country: None (occurrence: None)
  Receive Date: 20090424
  Receipt Date: 20090424
  Transmission Date: 20091009
  Serious: No
  Sender: FDA-Public Use
  Company Number: None

PATIENT
  Sex: Female
  Weight: 40.9 kg

DRUGS (8)
  1. SODIUM THIOSULFATE [Suspect]
     Dosage: 21 G
  2. BLEOMYCIN [Concomitant]
  3. CISPLATIN [Concomitant]
  4. DEXAMETHASONE 4MG TAB [Concomitant]
  5. DIPHENHYDRAMINE HCL [Concomitant]
  6. ETOPOSIDE [Concomitant]
  7. METOCLORPRAMIDE [Concomitant]
  8. ONDANSETRON [Concomitant]

REACTIONS (7)
  - BLOOD CALCIUM DECREASED [None]
  - CARBON DIOXIDE DECREASED [None]
  - HYPOAESTHESIA [None]
  - MUSCLE SPASMS [None]
  - MUSCLE TIGHTNESS [None]
  - PARAESTHESIA [None]
  - RESTLESSNESS [None]
